FAERS Safety Report 19249379 (Version 1)
Quarter: 2021Q2

REPORT INFORMATION
  Report Type: Spontaneous
  Country: GB (occurrence: GB)
  Receive Date: 20210513
  Receipt Date: 20210513
  Transmission Date: 20210717
  Serious: Yes (Hospitalization, Other)
  Sender: FDA-Public Use
  Company Number: GB-ADVANZ PHARMA-202105003264

PATIENT

DRUGS (2)
  1. PREDNISOLONE. [Suspect]
     Active Substance: PREDNISOLONE
     Dosage: 40 MG
  2. ASTRAZENECA COVID?19 VACCINE [Suspect]
     Active Substance: AZD-1222
     Indication: CORONAVIRUS INFECTION
     Dosage: 1 MG
     Dates: start: 20210403, end: 20210503

REACTIONS (3)
  - Influenza [Recovered/Resolved]
  - Vascular headache [Not Recovered/Not Resolved]
  - Arteritis [Unknown]

NARRATIVE: CASE EVENT DATE: 20210403
